FAERS Safety Report 4338215-3 (Version None)
Quarter: 2004Q1

REPORT INFORMATION
  Report Type: 
  Country: None (occurrence: None)
  Receive Date: 20040329
  Receipt Date: 20040209
  Transmission Date: 20041129
  Serious: No
  Sender: FDA-Public Use
  Company Number: USA040258924

PATIENT
  Age: 7 Year
  Sex: Male
  Weight: 29 kg

DRUGS (1)
  1. STRATTERA [Suspect]
     Dosage: 25 MG DAY
     Route: 048
     Dates: start: 20040225

REACTIONS (3)
  - DECREASED APPETITE [None]
  - FATIGUE [None]
  - YAWNING [None]
